FAERS Safety Report 8952986 (Version 1)
Quarter: 2012Q4

REPORT INFORMATION
  Report Type: 
  Country: US (occurrence: US)
  Receive Date: 20121205
  Receipt Date: 20121205
  Transmission Date: 20130627
  Serious: Yes (Hospitalization)
  Sender: FDA-Public Use
  Company Number: US-US-EMD SERONO, INC.-7178435

PATIENT

DRUGS (3)
  1. EGRIFTA [Suspect]
     Indication: PRODUCT USED FOR UNKNOWN INDICATION
  2. UNSPECIFIED INGREDIENT [Suspect]
     Indication: ABDOMINAL PAIN
  3. FLOMAX [Concomitant]
     Indication: CALCULUS BLADDER

REACTIONS (4)
  - Fall [Unknown]
  - Upper limb fracture [Unknown]
  - Shoulder operation [Unknown]
  - Abdominal pain [Unknown]
